FAERS Safety Report 7040252-5 (Version None)
Quarter: 2010Q4

REPORT INFORMATION
  Report Type: 
  Country: None (occurrence: None)
  Receive Date: 20101012
  Receipt Date: 20101008
  Transmission Date: 20110411
  Serious: Yes (Life-Threatening)
  Sender: FDA-Public Use
  Company Number: FR-BAYER-201041883GPV

PATIENT
  Age: 45 Year
  Sex: Female

DRUGS (18)
  1. ASPIRIN [Suspect]
     Indication: PRODUCT USED FOR UNKNOWN INDICATION
     Route: 048
     Dates: end: 20100515
  2. FENOFIBRATE [Suspect]
     Indication: PRODUCT USED FOR UNKNOWN INDICATION
     Route: 048
     Dates: start: 20100301, end: 20100514
  3. ADVIL [Suspect]
     Indication: PRODUCT USED FOR UNKNOWN INDICATION
     Dosage: TOTAL DAILY DOSE: 1 DF
     Route: 048
     Dates: start: 20100101, end: 20100515
  4. NEXEN [Suspect]
     Indication: PRODUCT USED FOR UNKNOWN INDICATION
     Route: 048
     Dates: end: 20100515
  5. NORFLOXACIN [Suspect]
     Indication: PRODUCT USED FOR UNKNOWN INDICATION
     Route: 048
     Dates: end: 20100515
  6. ZALDIAR [Suspect]
     Indication: PRODUCT USED FOR UNKNOWN INDICATION
     Route: 048
     Dates: end: 20100515
  7. DIPROSALIC [Suspect]
     Indication: PRODUCT USED FOR UNKNOWN INDICATION
     Route: 061
     Dates: start: 20100424, end: 20100515
  8. TETRAZEPAM [Suspect]
     Indication: PRODUCT USED FOR UNKNOWN INDICATION
     Route: 048
     Dates: start: 20100424, end: 20100515
  9. DOLIPRANE [Suspect]
     Indication: PRODUCT USED FOR UNKNOWN INDICATION
     Route: 048
     Dates: start: 20100424, end: 20100515
  10. TANGANIL [Suspect]
     Indication: PRODUCT USED FOR UNKNOWN INDICATION
     Route: 048
     Dates: start: 20100424, end: 20100515
  11. LOPERAMIDE BASE [Suspect]
     Indication: PRODUCT USED FOR UNKNOWN INDICATION
     Dates: start: 20100424, end: 20100515
  12. RHINADVIL [Suspect]
     Indication: PRODUCT USED FOR UNKNOWN INDICATION
     Route: 048
     Dates: start: 20100301, end: 20100515
  13. DAILY [Concomitant]
  14. TRIDESONIT [Concomitant]
     Route: 003
  15. PREDNISOLONE [Concomitant]
     Route: 048
  16. SIMVASTATIN [Concomitant]
     Route: 048
     Dates: start: 20100514, end: 20100515
  17. MINCEUR TURBO DRAINE (HERBAL EXTRACT) [Concomitant]
     Indication: MEDICAL DIET
  18. TERRAFOR (OCTALITE) [Concomitant]
     Indication: MEDICAL DIET

REACTIONS (1)
  - TOXIC EPIDERMAL NECROLYSIS [None]
